FAERS Safety Report 8982929 (Version 2)
Quarter: 2013Q1

REPORT INFORMATION
  Report Type: Report from Study
  Country: US (occurrence: US)
  Receive Date: 20121221
  Receipt Date: 20130111
  Transmission Date: 20140127
  Serious: Yes (Hospitalization)
  Sender: FDA-Public Use
  Company Number: US-ABBOTT-12P-163-1022635-00

PATIENT
  Age: 55 None
  Sex: 0
  Weight: 118.04 kg

DRUGS (7)
  1. HUMIRA [Suspect]
     Indication: CROHN^S DISEASE
     Dosage: LOADING DOSE
     Dates: start: 2008, end: 2008
  2. HUMIRA [Suspect]
     Dosage: TWO WEEK AFTER INITIAL DOSE
     Dates: start: 2008, end: 2008
  3. HUMIRA [Suspect]
     Dates: start: 2008, end: 20120129
  4. HUMIRA [Suspect]
     Dates: start: 20121201
  5. PREDNISONE [Concomitant]
     Indication: CROHN^S DISEASE
  6. ZYRTEC [Concomitant]
     Indication: PRODUCT USED FOR UNKNOWN INDICATION
  7. UNKNOWN MEDICATION [Concomitant]
     Indication: HYPERTENSION

REACTIONS (9)
  - Intestinal obstruction [Recovered/Resolved]
  - Pulmonary mass [Not Recovered/Not Resolved]
  - Nodule [Recovered/Resolved]
  - Nodule [Not Recovered/Not Resolved]
  - Lymph node calcification [Not Recovered/Not Resolved]
  - Nasopharyngitis [Not Recovered/Not Resolved]
  - Pulmonary mass [Not Recovered/Not Resolved]
  - Inflammation [Unknown]
  - Fibrosis [Unknown]
